FAERS Safety Report 14068576 (Version 1)
Quarter: 2017Q4

REPORT INFORMATION
  Report Type: Spontaneous
  Country: US (occurrence: US)
  Receive Date: 20171010
  Receipt Date: 20171010
  Transmission Date: 20180321
  Serious: No
  Sender: FDA-Public Use
  Company Number: US-PFIZER INC-2017432991

PATIENT
  Age: 50 Year
  Sex: Female
  Weight: 84.81 kg

DRUGS (1)
  1. IBRANCE [Suspect]
     Active Substance: PALBOCICLIB
     Indication: BREAST CANCER METASTATIC
     Dosage: 125 MG, CYCLIC (DAYS 1-21 Q28 DAYS)
     Route: 048
     Dates: start: 201709

REACTIONS (6)
  - White blood cell count decreased [Unknown]
  - Sinus congestion [Unknown]
  - Drug dose omission [Unknown]
  - Abdominal pain [Unknown]
  - Throat irritation [Unknown]
  - Constipation [Unknown]
